FAERS Safety Report 5375357-8 (Version None)
Quarter: 2007Q2

REPORT INFORMATION
  Report Type: 
  Country: None (occurrence: None)
  Receive Date: 20070629
  Receipt Date: 20070618
  Transmission Date: 20071010
  Serious: Yes (Hospitalization)
  Sender: FDA-Public Use
  Company Number: CA-PFIZER INC-2006106099

PATIENT
  Sex: Male
  Weight: 90 kg

DRUGS (12)
  1. LIPITOR [Suspect]
     Route: 048
  2. PANTOPRAZOLE SODIUM [Concomitant]
     Route: 048
  3. IRBESARTAN [Concomitant]
     Route: 048
  4. ACETYLSALICYLIC ACID SRT [Concomitant]
     Route: 048
  5. DILTIAZEM [Concomitant]
     Route: 048
  6. NOVOSEMIDE [Concomitant]
     Route: 048
  7. FERROUS SULFATE [Concomitant]
     Route: 048
  8. ZOPICLONE [Concomitant]
     Route: 048
  9. METFORMIN HCL [Concomitant]
     Route: 048
  10. TAMSULOSIN HCL [Concomitant]
     Route: 048
  11. PIOGLITAZONE [Concomitant]
     Route: 048
  12. GLYBURIDE [Concomitant]
     Route: 048

REACTIONS (4)
  - ANAEMIA [None]
  - DIVERTICULUM INTESTINAL [None]
  - DYSPNOEA [None]
  - PLEUROPERICARDITIS [None]
